FAERS Safety Report 4526336-1 (Version None)
Quarter: 2004Q4

REPORT INFORMATION
  Report Type: 
  Country: None (occurrence: None)
  Receive Date: 20041210
  Receipt Date: 20041201
  Transmission Date: 20050328
  Serious: Yes (Hospitalization)
  Sender: FDA-Public Use
  Company Number: 2004103051

PATIENT
  Age: 40 Year
  Sex: Male

DRUGS (6)
  1. ALPRAZOLAM [Suspect]
     Indication: ILL-DEFINED DISORDER
     Dosage: 1 DOSE FORM, ORAL
     Route: 048
     Dates: start: 20040715, end: 20040903
  2. ZOLPIDEM TARTRATE [Suspect]
     Indication: ILL-DEFINED DISORDER
     Dosage: 1 DOSE FORM (INTERVAL:  EVERY DAY), ORAL
     Route: 048
     Dates: start: 20040715, end: 20040903
  3. TROLAMINE (TROLAMINE) [Suspect]
     Indication: SUNBURN
     Dosage: TOPICAL
     Route: 061
     Dates: start: 20040809, end: 20040820
  4. HYDROCORTISONE [Suspect]
     Indication: SUNBURN
     Dosage: TOPICAL
     Route: 061
     Dates: start: 20040809, end: 20040820
  5. ACETYLSALICYLIC ACID (ACETYLSALICYLIC ACID) [Suspect]
     Indication: ILL-DEFINED DISORDER
     Dosage: ORAL
     Route: 048
     Dates: end: 20040903
  6. SPASMINE (CRATAEGUS SPP FLOWER POWDER, VALERIANA OFFICINALIS ROOT DRY [Suspect]
     Indication: ILL-DEFINED DISORDER
     Dosage: ORAL
     Route: 048
     Dates: end: 20040903

REACTIONS (5)
  - DERMATITIS BULLOUS [None]
  - EXTRAVASATION [None]
  - OEDEMA [None]
  - PHOTOSENSITIVITY ALLERGIC REACTION [None]
  - SUNBURN [None]
